FAERS Safety Report 8760054 (Version 1)
Quarter: 2012Q4

REPORT INFORMATION
  Report Type: 
  Country: US (occurrence: US)
  Receive Date: 20120829
  Receipt Date: 20120829
  Transmission Date: 20130627
  Serious: No
  Sender: FDA-Public Use
  Company Number: US-BAYER-2012-089378

PATIENT
  Sex: Female
  Weight: 68.93 kg

DRUGS (6)
  1. BETASERON [Suspect]
     Dosage: 1 ml, QOD
     Route: 058
     Dates: start: 1992
  2. PREMARIN [Concomitant]
     Dosage: UNK
  3. IMURAN [Concomitant]
  4. ESTRADIOL [Concomitant]
  5. ZANAFLEX [Concomitant]
  6. NUVIGIL [Concomitant]

REACTIONS (2)
  - Injection site pain [Unknown]
  - Injection site induration [Unknown]
